FAERS Safety Report 24632587 (Version 2)
Quarter: 2025Q4

REPORT INFORMATION
  Report Type: Spontaneous
  Country: GB (occurrence: GB)
  Receive Date: 20241118
  Receipt Date: 20251203
  Transmission Date: 20260117
  Serious: Yes (Other)
  Sender: SANDOZ
  Company Number: GB-MYLANLABS-2017M1077447

PATIENT
  Sex: Female

DRUGS (65)
  1. ARIPIPRAZOLE [Suspect]
     Active Substance: ARIPIPRAZOLE
     Indication: Hallucination, auditory
     Dosage: UNK
     Route: 065
     Dates: start: 2019
  2. ARIPIPRAZOLE [Suspect]
     Active Substance: ARIPIPRAZOLE
     Dosage: UNK (UNK, (EVERY), INITIATED-2019
     Route: 065
     Dates: start: 2019
  3. ARIPIPRAZOLE [Suspect]
     Active Substance: ARIPIPRAZOLE
     Indication: Hallucination, auditory
     Dosage: UNK
     Route: 065
  4. ARIPIPRAZOLE [Suspect]
     Active Substance: ARIPIPRAZOLE
     Dosage: UNK
     Route: 065
     Dates: start: 2019
  5. ARIPIPRAZOLE [Suspect]
     Active Substance: ARIPIPRAZOLE
     Dosage: UNK (UNK, (EVERY))
     Route: 065
  6. ABILIFY [Suspect]
     Active Substance: ARIPIPRAZOLE
     Indication: Hallucination, auditory
     Dosage: UNK
     Route: 065
     Dates: start: 2019
  7. ABILIFY [Suspect]
     Active Substance: ARIPIPRAZOLE
     Indication: Product used for unknown indication
  8. AMISULPRIDE [Suspect]
     Active Substance: AMISULPRIDE
     Dosage: (VAGINAL TABLET)
     Route: 048
  9. AMISULPRIDE [Suspect]
     Active Substance: AMISULPRIDE
     Indication: Hallucination, auditory
     Dosage: UNK
     Route: 048
     Dates: start: 20050215
  10. AMISULPRIDE [Suspect]
     Active Substance: AMISULPRIDE
     Dosage: UNK
     Route: 048
     Dates: start: 20050215
  11. CLOZARIL [Suspect]
     Active Substance: CLOZAPINE
     Indication: Hallucination, auditory
     Dosage: UNK
     Route: 048
     Dates: start: 20150215, end: 20171205
  12. CLOZARIL [Suspect]
     Active Substance: CLOZAPINE
     Indication: Schizophrenia
     Dosage: UNK
     Route: 048
     Dates: start: 20050215, end: 20171205
  13. CLOZARIL [Suspect]
     Active Substance: CLOZAPINE
     Dosage: UNK
     Route: 048
     Dates: start: 20180205, end: 20191205
  14. CLOZARIL [Suspect]
     Active Substance: CLOZAPINE
     Dosage: UNK UNK, QD
     Route: 048
     Dates: start: 201909
  15. CLOZARIL [Suspect]
     Active Substance: CLOZAPINE
     Dosage: UNK, QD
     Route: 048
  16. CLOZARIL [Suspect]
     Active Substance: CLOZAPINE
     Dosage: UNK, UNK, QD
     Route: 048
     Dates: start: 2019
  17. CLOZARIL [Suspect]
     Active Substance: CLOZAPINE
     Indication: Schizoaffective disorder
     Dosage: UNK
     Route: 048
     Dates: start: 2006, end: 20171205
  18. CLOZARIL [Suspect]
     Active Substance: CLOZAPINE
     Dosage: UNK
     Route: 048
     Dates: start: 20191205
  19. CLOZARIL [Suspect]
     Active Substance: CLOZAPINE
     Dosage: UNK, UNK (EVERY)/2019
     Route: 048
  20. CLOZAPINE [Suspect]
     Active Substance: CLOZAPINE
     Indication: Hallucination, auditory
     Dosage: UNK
     Route: 048
     Dates: start: 20050215, end: 20171205
  21. CLOZAPINE [Suspect]
     Active Substance: CLOZAPINE
     Indication: Schizoaffective disorder
     Dosage: UNK
     Route: 048
     Dates: start: 20150215, end: 20171205
  22. CLOZAPINE [Suspect]
     Active Substance: CLOZAPINE
     Indication: Schizophrenia
     Dosage: UNK
     Route: 048
     Dates: start: 2006, end: 20171205
  23. CLOZAPINE [Suspect]
     Active Substance: CLOZAPINE
     Dosage: UNK
     Route: 048
     Dates: start: 20180205, end: 2019
  24. CLOZAPINE [Suspect]
     Active Substance: CLOZAPINE
     Dosage: UNK
     Route: 048
     Dates: start: 2019
  25. HALDOL [Suspect]
     Active Substance: HALOPERIDOL
     Indication: Schizophrenia
     Dosage: DOSAGE FORM: UNSPECIFIED
     Route: 065
     Dates: start: 2019
  26. HALDOL [Suspect]
     Active Substance: HALOPERIDOL
     Indication: Hallucination, auditory
     Dosage: UNK
     Route: 065
     Dates: start: 2006, end: 20171205
  27. HALDOL [Suspect]
     Active Substance: HALOPERIDOL
     Indication: Drug ineffective
  28. HALDOL [Suspect]
     Active Substance: HALOPERIDOL
     Indication: Hallucination, auditory
  29. HALDOL [Suspect]
     Active Substance: HALOPERIDOL
     Indication: Hallucination, auditory
  30. HALDOL [Suspect]
     Active Substance: HALOPERIDOL
     Indication: Schizophrenia
  31. HALOPERIDOL [Suspect]
     Active Substance: HALOPERIDOL
     Indication: Hallucination, auditory
     Dosage: DOSAGE FORM: UNSPECIFIED
     Route: 065
     Dates: start: 2019
  32. HALOPERIDOL [Suspect]
     Active Substance: HALOPERIDOL
     Indication: Hallucination, auditory
  33. HALOPERIDOL [Suspect]
     Active Substance: HALOPERIDOL
     Indication: Hallucination, auditory
  34. HALOPERIDOL [Suspect]
     Active Substance: HALOPERIDOL
     Indication: Schizophrenia
  35. HALOPERIDOL [Suspect]
     Active Substance: HALOPERIDOL
     Indication: Schizophrenia
  36. HALOPERIDOL [Suspect]
     Active Substance: HALOPERIDOL
     Indication: Schizophrenia
  37. OLANZAPINE [Suspect]
     Active Substance: OLANZAPINE
     Indication: Drug ineffective
     Dosage: DOSAGE FORM: UNKNOWN; ;
     Route: 048
  38. OLANZAPINE [Suspect]
     Active Substance: OLANZAPINE
     Indication: Hallucination, auditory
     Dosage: UNK
     Route: 048
  39. OLANZAPINE [Suspect]
     Active Substance: OLANZAPINE
     Indication: Hallucination, auditory
     Dosage: UNK
     Route: 048
  40. OLANZAPINE [Suspect]
     Active Substance: OLANZAPINE
     Indication: Schizophrenia
     Dosage: UNK
     Route: 048
  41. QUETIAPINE [Suspect]
     Active Substance: QUETIAPINE
     Indication: Product used for unknown indication
     Dosage: UNK
     Route: 048
  42. QUETIAPINE [Suspect]
     Active Substance: QUETIAPINE
     Dosage: UNK
     Route: 048
  43. QUETIAPINE [Suspect]
     Active Substance: QUETIAPINE
     Dosage: UNK
     Route: 048
  44. QUETIAPINE [Suspect]
     Active Substance: QUETIAPINE
     Indication: Product used for unknown indication
     Dosage: UNK, UNK (EVERY)
     Route: 048
  45. QUETIAPINE [Suspect]
     Active Substance: QUETIAPINE
     Indication: Product used for unknown indication
     Dosage: UNK, EVERY
     Route: 048
  46. QUETIAPINE [Suspect]
     Active Substance: QUETIAPINE
     Indication: Product used for unknown indication
  47. RISPERIDONE [Suspect]
     Active Substance: RISPERIDONE
     Indication: Drug ineffective
     Dosage: DOSAGE FORM: UNSPECIFIED; ;
     Route: 065
  48. RISPERIDONE [Suspect]
     Active Substance: RISPERIDONE
     Indication: Hallucination, auditory
     Dosage: UNK
     Route: 065
     Dates: start: 2006, end: 20171205
  49. RISPERIDONE [Suspect]
     Active Substance: RISPERIDONE
     Indication: Schizophrenia
     Dosage: UNK
     Route: 065
  50. RISPERIDONE [Suspect]
     Active Substance: RISPERIDONE
     Indication: Hallucination, auditory
  51. RISPERDAL [Suspect]
     Active Substance: RISPERIDONE
     Indication: Drug ineffective
     Dosage: UNK
     Route: 065
     Dates: start: 2006, end: 20171205
  52. RISPERDAL [Suspect]
     Active Substance: RISPERIDONE
     Indication: Hallucination, auditory
     Dosage: UNK
     Route: 065
  53. RISPERDAL [Suspect]
     Active Substance: RISPERIDONE
     Indication: Schizophrenia
     Dosage: UNK , (EVERY)
     Route: 065
  54. RISPERDAL [Suspect]
     Active Substance: RISPERIDONE
     Indication: Hallucination, auditory
  55. RISPERDAL [Suspect]
     Active Substance: RISPERIDONE
     Indication: Schizophrenia
  56. ZUCLOPENTHIXOL [Suspect]
     Active Substance: ZUCLOPENTHIXOL
     Indication: Hallucination, auditory
     Dosage: DOSAGE FORM: UNKNOWN
     Route: 065
     Dates: start: 2006, end: 20171205
  57. ZUCLOPENTHIXOL [Suspect]
     Active Substance: ZUCLOPENTHIXOL
     Indication: Drug ineffective
  58. ZUCLOPENTHIXOL [Suspect]
     Active Substance: ZUCLOPENTHIXOL
     Indication: Hallucination, auditory
  59. ZUCLOPENTHIXOL [Suspect]
     Active Substance: ZUCLOPENTHIXOL
     Indication: Schizophrenia
  60. ZUCLOPENTHIXOL HYDROCHLORIDE [Suspect]
     Active Substance: ZUCLOPENTHIXOL HYDROCHLORIDE
     Indication: Schizophrenia
     Dosage: UNK
     Route: 065
     Dates: start: 2006, end: 20171205
  61. ZUCLOPENTHIXOL HYDROCHLORIDE [Suspect]
     Active Substance: ZUCLOPENTHIXOL HYDROCHLORIDE
     Indication: Hallucination, auditory
     Dosage: UNK
     Route: 065
  62. ZUCLOPENTHIXOL HYDROCHLORIDE [Suspect]
     Active Substance: ZUCLOPENTHIXOL HYDROCHLORIDE
     Indication: Hallucination, auditory
  63. ZUCLOPENTHIXOL [Suspect]
     Active Substance: ZUCLOPENTHIXOL
     Indication: Schizophrenia
     Dosage: UNK
     Route: 065
     Dates: start: 2006, end: 20171205
  64. ZUCLOPENTHIXOL [Suspect]
     Active Substance: ZUCLOPENTHIXOL
     Indication: Hallucination, auditory
  65. ZUCLOPENTHIXOL [Suspect]
     Active Substance: ZUCLOPENTHIXOL
     Indication: Hallucination, auditory

REACTIONS (15)
  - Schizophrenia [Not Recovered/Not Resolved]
  - Schizophrenia [Not Recovered/Not Resolved]
  - Suicidal ideation [Unknown]
  - Eosinophil count decreased [Recovered/Resolved]
  - Mental impairment [Not Recovered/Not Resolved]
  - Eating disorder [Unknown]
  - Malaise [Unknown]
  - Neutropenia [Recovered/Resolved]
  - Neutropenia [Recovered/Resolved]
  - Leukopenia [Recovered/Resolved]
  - Drug abuse [Unknown]
  - Intentional product misuse [Unknown]
  - Medication error [Unknown]
  - Product use in unapproved indication [Unknown]
  - Drug ineffective [Unknown]
